FAERS Safety Report 10023937 (Version 2)
Quarter: 2014Q2

REPORT INFORMATION
  Report Type: Spontaneous
  Country: US (occurrence: US)
  Receive Date: 20140320
  Receipt Date: 20140610
  Transmission Date: 20141212
  Serious: Yes (Other)
  Sender: FDA-Public Use
  Company Number: US-PFIZER INC-2014074894

PATIENT
  Age: 64 Year
  Sex: Female
  Weight: 80.7 kg

DRUGS (10)
  1. LIPITOR [Suspect]
     Indication: LOW DENSITY LIPOPROTEIN INCREASED
     Dosage: 10 MG, 1X/DAY
     Route: 048
     Dates: start: 20110103, end: 201401
  2. LIPITOR [Suspect]
     Indication: CARDIOVASCULAR EVENT PROPHYLAXIS
  3. ATORVASTATIN CALCIUM [Suspect]
     Indication: BLOOD CHOLESTEROL INCREASED
     Dosage: 10 MG, 1X/DAY
     Dates: start: 20110103, end: 201401
  4. MULTIVITAMINS [Concomitant]
     Dosage: 1 DF, 1X/DAY
     Dates: start: 199001
  5. CALCIUM-MAGNESIUM [Concomitant]
     Dosage: 1 DF, 1X/DAY
     Dates: start: 199001
  6. CO-Q 10 [Concomitant]
     Dosage: 1 DF, 1X/DAY
     Dates: start: 199001
  7. VITAMIN D [Concomitant]
     Dosage: 1 DF, 1X/DAY
     Dates: start: 199001
  8. CINNAMON [Concomitant]
     Dosage: 1 DF, 1X/DAY
     Dates: start: 199001
  9. OMEGA 3 [Concomitant]
     Dosage: 1 DF, 1X/DAY
     Dates: start: 199001
  10. TAMIFLU [Concomitant]
     Dosage: 1 DF, 1X/DAY
     Dates: start: 199001

REACTIONS (1)
  - Type 2 diabetes mellitus [Not Recovered/Not Resolved]
